FAERS Safety Report 7437983-1 (Version None)
Quarter: 2011Q2

REPORT INFORMATION
  Report Type: 
  Country: None (occurrence: None)
  Receive Date: 20110426
  Receipt Date: 20110419
  Transmission Date: 20111010
  Serious: Yes (Other)
  Sender: FDA-Public Use
  Company Number: US-SANOFI-AVENTIS-2011SA024980

PATIENT
  Sex: Female

DRUGS (4)
  1. COUMADIN [Concomitant]
  2. MULTAQ [Suspect]
     Indication: ATRIAL FIBRILLATION
     Route: 065
     Dates: start: 20100101, end: 20110201
  3. SYNTHROID [Concomitant]
  4. LASIX [Concomitant]

REACTIONS (4)
  - ASTHENIA [None]
  - ATRIAL FIBRILLATION [None]
  - PYREXIA [None]
  - LIVER FUNCTION TEST ABNORMAL [None]
